FAERS Safety Report 19714330 (Version 1)
Quarter: 2021Q3

REPORT INFORMATION
  Report Type: Spontaneous
  Country: US (occurrence: US)
  Receive Date: 20210818
  Receipt Date: 20210818
  Transmission Date: 20211014
  Serious: Yes (Life-Threatening, Hospitalization)
  Sender: FDA-Public Use
  Company Number: None

PATIENT
  Age: 81 Year
  Sex: Male
  Weight: 85.5 kg

DRUGS (4)
  1. ALENDRONATE SODIUM TABLET 70 MG [Suspect]
     Active Substance: ALENDRONATE SODIUM
     Indication: BONE DENSITY ABNORMAL
     Dosage: ?          QUANTITY:1 TABLET(S);OTHER FREQUENCY:ONCE PER WEEK;?
     Route: 048
     Dates: start: 20201001, end: 20210803
  2. VITAMIN D3 [Concomitant]
     Active Substance: CHOLECALCIFEROL
  3. TAMSULOSIN [Concomitant]
     Active Substance: TAMSULOSIN
  4. FINASTERIDE. [Concomitant]
     Active Substance: FINASTERIDE

REACTIONS (2)
  - Heart rate increased [None]
  - Myocardial infarction [None]

NARRATIVE: CASE EVENT DATE: 20210727
